FAERS Safety Report 6718412-X (Version None)
Quarter: 2010Q2

REPORT INFORMATION
  Report Type: 
  Country: None (occurrence: None)
  Receive Date: 20100504
  Receipt Date: 20100421
  Transmission Date: 20101027
  Serious: Yes (Other)
  Sender: FDA-Public Use
  Company Number: 20108642

PATIENT
  Age: 10 Year
  Sex: Male

DRUGS (1)
  1. LIORESAL [Suspect]
     Indication: MUSCLE SPASTICITY
     Dosage: 189.12 MCG, DAILY, INTRATHECAL
     Route: 037

REACTIONS (5)
  - DEVICE MALFUNCTION [None]
  - IRRITABILITY [None]
  - MUSCLE TIGHTNESS [None]
  - SOMNOLENCE [None]
  - UNEVALUABLE EVENT [None]
